FAERS Safety Report 14893753 (Version 2)
Quarter: 2018Q2

REPORT INFORMATION
  Report Type: Report from Study
  Country: US (occurrence: US)
  Receive Date: 20180514
  Receipt Date: 20180610
  Transmission Date: 20180711
  Serious: Yes (Other)
  Sender: FDA-Public Use
  Company Number: US-MALLINCKRODT-T201801961

PATIENT
  Sex: Male

DRUGS (2)
  1. REPOSITORY CORTICOTROPIN INJECTION [Suspect]
     Active Substance: CORTICOTROPIN
     Dosage: 80 UNITS / 1 ML 2 TIMES PER WEEK MONDAY AND FRIDAY
     Route: 058
  2. REPOSITORY CORTICOTROPIN INJECTION [Suspect]
     Active Substance: CORTICOTROPIN
     Indication: GLOMERULONEPHRITIS MEMBRANOUS
     Dosage: 80 UNITS / 1 ML, 2 TIMES PER WEEK THURSDAYS AND SUNDAYS
     Route: 058
     Dates: start: 20180411

REACTIONS (5)
  - Weight increased [Unknown]
  - Hypertension [Unknown]
  - Drug dose omission [Unknown]
  - Atrial fibrillation [Unknown]
  - Fluid retention [Unknown]
